FAERS Safety Report 6250688-8 (Version None)
Quarter: 2009Q2

REPORT INFORMATION
  Report Type: 
  Country: None (occurrence: None)
  Receive Date: 20090630
  Receipt Date: 20090624
  Transmission Date: 20091009
  Serious: Yes (Hospitalization)
  Sender: FDA-Public Use
  Company Number: AU-BAYER-200923212GPV

PATIENT
  Age: 47 Year
  Sex: Male

DRUGS (12)
  1. SORAFENIB [Suspect]
     Indication: RENAL CELL CARCINOMA
     Route: 048
     Dates: start: 20090511, end: 20090601
  2. SORAFENIB [Suspect]
     Route: 048
     Dates: start: 20090618
  3. NORFLOXACIN [Concomitant]
     Indication: CYSTITIS
     Route: 048
     Dates: start: 20090519, end: 20090610
  4. RULIDE [Concomitant]
     Indication: LOCAL SWELLING
     Route: 048
     Dates: start: 20090519, end: 20090524
  5. CARDIPRIN [Concomitant]
     Indication: PROPHYLAXIS
     Route: 048
  6. MICARDIS [Concomitant]
     Indication: HYPERTENSION
     Route: 048
  7. MONOPRIL [Concomitant]
     Indication: HYPERTENSION
     Route: 048
  8. CRESTOR [Concomitant]
     Indication: HYPERLIPIDAEMIA
  9. NEXIUM [Concomitant]
     Indication: PROPHYLAXIS
     Route: 048
  10. ALLOPURINOL [Concomitant]
     Indication: GOUT
     Route: 048
  11. MULTI-VITAMINS [Concomitant]
     Indication: SUPPLEMENTATION THERAPY
     Route: 048
  12. VITAMIN B6 [Concomitant]
     Indication: SUPPLEMENTATION THERAPY
     Route: 048

REACTIONS (2)
  - EOSINOPHILIC CYSTITIS [None]
  - LIVER FUNCTION TEST ABNORMAL [None]
